FAERS Safety Report 9231048 (Version 1)
Quarter: 2013Q2

REPORT INFORMATION
  Report Type: Report from Study
  Country: US (occurrence: US)
  Receive Date: 20130415
  Receipt Date: 20130415
  Transmission Date: 20140414
  Serious: Yes (Other)
  Sender: FDA-Public Use
  Company Number: US-ROCHE-1209502

PATIENT
  Sex: 0

DRUGS (1)
  1. NAPROXEN [Suspect]
     Indication: OSTEOARTHRITIS
     Dosage: AVERAGE TOTAL DAILY DOSE 819.8 MG
     Route: 065

REACTIONS (8)
  - Small intestinal haemorrhage [Unknown]
  - Acute myocardial infarction [Unknown]
  - Cerebrovascular accident [Unknown]
  - Angina unstable [Unknown]
  - Transient ischaemic attack [Unknown]
  - Venous thrombosis [Unknown]
  - Peripheral artery thrombosis [Unknown]
  - Cardiac failure congestive [Unknown]
